FAERS Safety Report 21071244 (Version 1)
Quarter: 2022Q3

REPORT INFORMATION
  Report Type: Report from Study
  Country: US (occurrence: US)
  Receive Date: 20220712
  Receipt Date: 20220712
  Transmission Date: 20221027
  Serious: Yes (Hospitalization)
  Sender: FDA-Public Use
  Company Number: US-HLS-202200738

PATIENT
  Sex: Male

DRUGS (1)
  1. CLOZAPINE [Suspect]
     Active Substance: CLOZAPINE
     Indication: Product used for unknown indication
     Dosage: 50MG AT BEDTIME ON JUNE 29?INCREASE OF 50 MG PER DAY TILL REACHES 200 MG.
     Route: 048

REACTIONS (1)
  - Treatment noncompliance [Unknown]
